FAERS Safety Report 21368860 (Version 1)
Quarter: 2022Q3

REPORT INFORMATION
  Report Type: Spontaneous
  Country: US (occurrence: US)
  Receive Date: 20220923
  Receipt Date: 20220923
  Transmission Date: 20221026
  Serious: No
  Sender: FDA-Public Use
  Company Number: US-NOVARTISTESTPH-NVSC2022US214531

PATIENT
  Sex: Female

DRUGS (1)
  1. LEQVIO [Suspect]
     Active Substance: INCLISIRAN SODIUM
     Indication: Hypercholesterolaemia
     Dosage: 284 MG (2ND DOSE IN 3 MONTHS AND SUBSEQUENT DOSES EVERY 6 MONTHS)
     Route: 058
     Dates: start: 20220626, end: 20220626

REACTIONS (3)
  - Headache [Unknown]
  - Fatigue [Unknown]
  - Pain in jaw [Unknown]
